FAERS Safety Report 5592152-5 (Version None)
Quarter: 2008Q1

REPORT INFORMATION
  Report Type: 
  Country: None (occurrence: None)
  Receive Date: 20080115
  Receipt Date: 20071003
  Transmission Date: 20080703
  Serious: No
  Sender: FDA-Public Use
  Company Number: US-ABBOTT-07P-163-0419846-00

PATIENT
  Sex: Male

DRUGS (4)
  1. ADVICOR [Suspect]
     Indication: DRUG USE FOR UNKNOWN INDICATION
     Dates: start: 20070928
  2. WARFARIN SODIUM [Concomitant]
     Indication: DRUG USE FOR UNKNOWN INDICATION
  3. TRAMADOL HCL [Concomitant]
     Indication: DRUG USE FOR UNKNOWN INDICATION
  4. VITAMIN TABLET WITH NIACIN [Concomitant]
     Indication: NEUROPATHY PERIPHERAL
     Dates: start: 20071002

REACTIONS (2)
  - ERYTHEMA [None]
  - PAIN [None]
